FAERS Safety Report 11695957 (Version 1)
Quarter: 2015Q4

REPORT INFORMATION
  Report Type: Spontaneous
  Country: US (occurrence: None)
  Receive Date: 20151103
  Receipt Date: 20151103
  Transmission Date: 20160304
  Serious: Yes (Life-Threatening, Hospitalization)
  Sender: FDA-Public Use
  Company Number: None

PATIENT
  Age: 61 Year
  Sex: Male
  Weight: 59.88 kg

DRUGS (8)
  1. XIFAXAN [Concomitant]
     Active Substance: RIFAXIMIN
  2. OXYCODONE [Concomitant]
     Active Substance: OXYCODONE
  3. FENTANYL TRANSDERMAL SYSTEM [Concomitant]
     Active Substance: FENTANYL
  4. HARVONI [Suspect]
     Active Substance: LEDIPASVIR\SOFOSBUVIR
     Indication: CHRONIC HEPATITIS C
     Route: 048
     Dates: start: 20150826, end: 20151010
  5. FUROSEMIDE. [Concomitant]
     Active Substance: FUROSEMIDE
  6. LACTULOSE. [Concomitant]
     Active Substance: LACTULOSE
  7. ATENOLOL. [Suspect]
     Active Substance: ATENOLOL
  8. AMILORIDE [Concomitant]
     Active Substance: AMILORIDE

REACTIONS (3)
  - Acute kidney injury [None]
  - Liver transplant [None]
  - Hepatitis C [None]

NARRATIVE: CASE EVENT DATE: 20151023
